FAERS Safety Report 8430886-5 (Version None)
Quarter: 2012Q2

REPORT INFORMATION
  Report Type: 
  Country: None (occurrence: None)
  Receive Date: 20120323
  Receipt Date: 20110829
  Transmission Date: 20120825
  Serious: Yes (Other)
  Sender: FDA-Public Use
  Company Number: 163-21880-11083499

PATIENT
  Age: 70 Year
  Sex: Male

DRUGS (2)
  1. REVLIMID [Suspect]
     Indication: MULTIPLE MYELOMA
     Dosage: 25 MG, D 1-21, PO
     Route: 048
     Dates: start: 20110201, end: 20110301
  2. DECADRON (DEXAMETHOSINE) (UNKNOWN) [Concomitant]

REACTIONS (1)
  - MYOCARDIAL INFARCTION [None]
